FAERS Safety Report 4678682-9 (Version None)
Quarter: 2005Q2

REPORT INFORMATION
  Report Type: 
  Country: None (occurrence: None)
  Receive Date: 20050527
  Receipt Date: 20050516
  Transmission Date: 20051028
  Serious: Yes (Other)
  Sender: FDA-Public Use
  Company Number: 2005003323

PATIENT
  Age: 40 Year
  Sex: Male

DRUGS (4)
  1. NEURONTIN [Suspect]
     Indication: CONVULSION
     Dosage: 1800 MG (DAILY), ORAL
     Route: 048
  2. NEURONTIN [Suspect]
     Indication: NEUROPATHY PERIPHERAL
     Dosage: 1800 MG (DAILY), ORAL
     Route: 048
  3. NEURONTIN [Suspect]
     Indication: PANIC DISORDER
     Dosage: 1800 MG (DAILY), ORAL
     Route: 048
  4. NEURONTIN [Suspect]
     Indication: RESTLESS LEGS SYNDROME
     Dosage: 1800 MG (DAILY), ORAL
     Route: 048

REACTIONS (13)
  - ADJUSTMENT DISORDER [None]
  - BACK PAIN [None]
  - CONVULSION [None]
  - DRUG INEFFECTIVE [None]
  - DYSPNOEA [None]
  - FEAR [None]
  - HEADACHE [None]
  - HYPERHIDROSIS [None]
  - MARITAL PROBLEM [None]
  - PAIN IN EXTREMITY [None]
  - PALPITATIONS [None]
  - PANIC DISORDER [None]
  - SUICIDE ATTEMPT [None]
